FAERS Safety Report 12810087 (Version 1)
Quarter: 2016Q4

REPORT INFORMATION
  Report Type: Spontaneous
  Country: US (occurrence: US)
  Receive Date: 20161004
  Receipt Date: 20161004
  Transmission Date: 20170207
  Serious: Yes (Hospitalization)
  Sender: FDA-Public Use
  Company Number: None

PATIENT
  Age: 56 Year
  Sex: Male
  Weight: 77.3 kg

DRUGS (13)
  1. RIBAVIRIN 800MG [Suspect]
     Active Substance: RIBAVIRIN
     Indication: HEPATITIS C
     Route: 048
     Dates: start: 20160728, end: 20160817
  2. FUROSEMIDE. [Concomitant]
     Active Substance: FUROSEMIDE
  3. EPCLUSA [Suspect]
     Active Substance: SOFOSBUVIR\VELPATASVIR
     Indication: HEPATITIS C
     Route: 048
     Dates: start: 20160728
  4. SUVOREXANT. [Concomitant]
     Active Substance: SUVOREXANT
  5. KETOTIFIN [Concomitant]
  6. ASPIRIN. [Concomitant]
     Active Substance: ASPIRIN
  7. DOCQLACE [Concomitant]
     Active Substance: DOCUSATE SODIUM
  8. FERROUS SULFATE. [Concomitant]
     Active Substance: FERROUS SULFATE
  9. GABAPENTIN. [Concomitant]
     Active Substance: GABAPENTIN
  10. LAMOTRIGINE. [Concomitant]
     Active Substance: LAMOTRIGINE
  11. QUETIAPINE. [Concomitant]
     Active Substance: QUETIAPINE
  12. GENERLAC [Concomitant]
     Active Substance: LACTULOSE
  13. METFORMIN [Concomitant]
     Active Substance: METFORMIN HYDROCHLORIDE

REACTIONS (11)
  - Chest discomfort [None]
  - Transfusion related complication [None]
  - Polyp [None]
  - Anaemia [None]
  - Fatigue [None]
  - Movement disorder [None]
  - Asthenia [None]
  - Dizziness postural [None]
  - Gait disturbance [None]
  - Feeling abnormal [None]
  - Dyspnoea [None]

NARRATIVE: CASE EVENT DATE: 20160815
